FAERS Safety Report 6530338-3 (Version None)
Quarter: 2010Q1

REPORT INFORMATION
  Report Type: 
  Country: None (occurrence: None)
  Receive Date: 20100107
  Receipt Date: 20091202
  Transmission Date: 20100710
  Serious: Yes (Other)
  Sender: FDA-Public Use
  Company Number: PHHY2009IN53808

PATIENT
  Age: 25 Year
  Sex: Female

DRUGS (6)
  1. METOPROLOL [Suspect]
     Dosage: 5 MG
  2. METOPROLOL [Suspect]
     Dosage: 100 MG PER DAY
     Route: 048
  3. AMIODARONE HCL [Suspect]
     Dosage: 150 MG
  4. AMIODARONE HCL [Suspect]
  5. AMIODARONE HCL [Suspect]
     Dosage: 1200 MG PER DAY
     Route: 048
  6. AMIODARONE HCL [Suspect]
     Dosage: 800 MG PER DAY
     Route: 048

REACTIONS (3)
  - DRUG EXPOSURE DURING PREGNANCY [None]
  - EJECTION FRACTION DECREASED [None]
  - VENTRICULAR TACHYCARDIA [None]
